FAERS Safety Report 22321980 (Version 1)
Quarter: 2023Q2

REPORT INFORMATION
  Report Type: Spontaneous
  Country: GB (occurrence: GB)
  Receive Date: 20230516
  Receipt Date: 20230516
  Transmission Date: 20230721
  Serious: Yes (Other)
  Sender: FDA-Public Use
  Company Number: None

PATIENT

DRUGS (1)
  1. ANADIN EXTRA [Suspect]
     Active Substance: ACETAMINOPHEN\ASPIRIN\CAFFEINE
     Indication: Product used for unknown indication
     Dosage: UNK (ASPIRIN 300MG DISPERSIBLE TABLETS. PARACETAMOL 500MG / CAFFEINE 65MG TABLETS.)

REACTIONS (1)
  - Gastrointestinal haemorrhage [Recovered/Resolved]
